FAERS Safety Report 7727586-3 (Version None)
Quarter: 2011Q3

REPORT INFORMATION
  Report Type: 
  Country: None (occurrence: None)
  Receive Date: 20110902
  Receipt Date: 20110829
  Transmission Date: 20111222
  Serious: Yes (Life-Threatening, Hospitalization)
  Sender: FDA-Public Use
  Company Number: US-ASTRAZENECA-2011SE50471

PATIENT
  Age: 60 Year
  Sex: Female

DRUGS (4)
  1. SEROQUEL [Suspect]
     Indication: MANIA
     Route: 048
  2. SEROQUEL [Suspect]
     Indication: DEPRESSED MOOD
     Route: 048
  3. SEROQUEL [Suspect]
     Indication: BIPOLAR DISORDER
     Route: 048
  4. NEXIUM [Suspect]
     Route: 048

REACTIONS (6)
  - FALL [None]
  - COMA [None]
  - BRAIN INJURY [None]
  - THYROID DISORDER [None]
  - MULTIPLE ALLERGIES [None]
  - CONVULSION [None]
